FAERS Safety Report 7488345-2 (Version None)
Quarter: 2011Q2

REPORT INFORMATION
  Report Type: 
  Country: None (occurrence: None)
  Receive Date: 20110518
  Receipt Date: 20110504
  Transmission Date: 20111010
  Serious: Yes (Hospitalization, Other)
  Sender: FDA-Public Use
  Company Number: NL-JNJFOC-20110308762

PATIENT
  Sex: Male
  Weight: 73 kg

DRUGS (11)
  1. INFLIXIMAB, RECOMBINANT [Suspect]
     Route: 042
     Dates: start: 20101014
  2. PERSANTINE [Concomitant]
  3. INFLIXIMAB, RECOMBINANT [Suspect]
     Indication: RHEUMATOID ARTHRITIS
     Route: 042
     Dates: start: 20030910, end: 20040615
  4. METHOTREXATE [Suspect]
     Indication: RHEUMATOID ARTHRITIS
  5. SIMVASTATIN [Concomitant]
  6. PERSANTINE [Concomitant]
     Dosage: FOR 2 WEEKS
  7. DICLOFENAC SODIUM [Concomitant]
     Indication: PAIN
  8. ASCAL [Concomitant]
  9. INFLIXIMAB, RECOMBINANT [Suspect]
     Route: 042
     Dates: start: 20070414, end: 20100824
  10. FOLIC ACID [Concomitant]
     Indication: PROPHYLAXIS
  11. ASCAL [Concomitant]
     Dosage: 160 MG FOR 2 WEEKS

REACTIONS (1)
  - TRANSIENT ISCHAEMIC ATTACK [None]
